FAERS Safety Report 14251146 (Version 7)
Quarter: 2018Q2

REPORT INFORMATION
  Report Type: Report from Study
  Country: US (occurrence: US)
  Receive Date: 20171205
  Receipt Date: 20180525
  Transmission Date: 20180711
  Serious: Yes (Hospitalization, Other)
  Sender: FDA-Public Use
  Company Number: US-PFIZER INC-2017472452

PATIENT
  Age: 59 Year
  Sex: Female

DRUGS (2)
  1. IBRANCE [Suspect]
     Active Substance: PALBOCICLIB
     Dosage: 100 MG, 1X/DAY
     Route: 048
     Dates: start: 20180208, end: 20180516
  2. IBRANCE [Suspect]
     Active Substance: PALBOCICLIB
     Indication: BREAST CANCER FEMALE
     Dosage: 125 MG, 1X/DAY
     Route: 048
     Dates: start: 20171027, end: 20180118

REACTIONS (12)
  - Dysphonia [Unknown]
  - Headache [Recovering/Resolving]
  - Sciatica [Not Recovered/Not Resolved]
  - Nausea [Recovering/Resolving]
  - Cough [Unknown]
  - White blood cell count decreased [Recovered/Resolved]
  - Influenza [Recovered/Resolved]
  - Condition aggravated [Not Recovered/Not Resolved]
  - Neoplasm progression [Unknown]
  - Osteonecrosis of jaw [Unknown]
  - Musculoskeletal pain [Not Recovered/Not Resolved]
  - Myalgia [Not Recovered/Not Resolved]

NARRATIVE: CASE EVENT DATE: 2017
